FAERS Safety Report 25865245 (Version 1)
Quarter: 2025Q3

REPORT INFORMATION
  Report Type: Spontaneous
  Country: US (occurrence: None)
  Receive Date: 20250930
  Receipt Date: 20250930
  Transmission Date: 20251020
  Serious: No
  Sender: FDA-CTU
  Company Number: None

PATIENT
  Age: 86 Year
  Sex: Female

DRUGS (11)
  1. MEKTOVI [Suspect]
     Active Substance: BINIMETINIB
     Indication: Skin cancer
     Route: 048
     Dates: start: 20250917
  2. CALCIUM 600MG W/D TABLETS G/S [Concomitant]
  3. AMLODIPINE BESYLATE [Concomitant]
     Active Substance: AMLODIPINE BESYLATE
  4. ATENOLOL 25MG TABLETS [Concomitant]
  5. ELIQUIS [Concomitant]
     Active Substance: APIXABAN
  6. FIBER GUMMIES 90S [Concomitant]
  7. LEVOTHYROXINE 0.05MG (50MCG) CAPS [Concomitant]
  8. LISINOPRIL [Concomitant]
     Active Substance: LISINOPRIL
  9. MULTIVITAMIN ADULT 50+ TABLETS [Concomitant]
  10. PROBIO COLON SUPPORT CAPSULES 60^S [Concomitant]
  11. VITAMIN B12 2000MCG ER TABLETS [Concomitant]

REACTIONS (1)
  - Intestinal obstruction [None]

NARRATIVE: CASE EVENT DATE: 20250925
